FAERS Safety Report 5862477-4 (Version None)
Quarter: 2008Q3

REPORT INFORMATION
  Report Type: 
  Country: None (occurrence: None)
  Receive Date: 20080828
  Receipt Date: 20080512
  Transmission Date: 20090109
  Serious: No
  Sender: FDA-Public Use
  Company Number: US-BAYER-200821404NA

PATIENT
  Age: 49 Year
  Sex: Female
  Weight: 129 kg

DRUGS (4)
  1. CLIMARA [Suspect]
     Indication: HORMONE REPLACEMENT THERAPY
     Route: 062
  2. CLIMARA [Suspect]
     Route: 062
  3. CYTOMEL [Concomitant]
  4. LEVOXYL [Concomitant]

REACTIONS (10)
  - DIZZINESS [None]
  - FLUSHING [None]
  - HEADACHE [None]
  - HOT FLUSH [None]
  - INCORRECT DOSE ADMINISTERED [None]
  - MENOPAUSAL SYMPTOMS [None]
  - MOOD SWINGS [None]
  - PALPITATIONS [None]
  - PANIC ATTACK [None]
  - TACHYCARDIA [None]
